FAERS Safety Report 6369120-9 (Version None)
Quarter: 2009Q3

REPORT INFORMATION
  Report Type: 
  Country: None (occurrence: None)
  Receive Date: 20090922
  Receipt Date: 20090910
  Transmission Date: 20100115
  Serious: Yes (Other)
  Sender: FDA-Public Use
  Company Number: PHEH2009US10741

PATIENT
  Sex: Female
  Weight: 72.562 kg

DRUGS (8)
  1. METHYLPHENIDATE HCL [Suspect]
     Indication: ASTHENIA
     Dosage: 5 MG,  1 TAB QD
     Dates: start: 20090701
  2. PROTONIX [Concomitant]
     Indication: GASTROOESOPHAGEAL REFLUX DISEASE
     Dosage: UNK
  3. LEVOTHROID [Concomitant]
     Indication: THYROID DISORDER
     Dosage: 25 MG, UNK
  4. CYMBALTA [Concomitant]
     Indication: DEPRESSION
     Dosage: 30 MG, UNK
  5. FUROSEMIDE [Concomitant]
     Indication: DIURETIC THERAPY
     Dosage: 20 MG, UNK
  6. HYZAAR [Concomitant]
     Indication: BLOOD PRESSURE
     Dosage: 50/12.5MG, UNK
  7. LORAZEPAM [Concomitant]
     Indication: ANXIETY
     Dosage: 2 MG, UNK
  8. TRAZODONE [Concomitant]
     Indication: SLEEP DISORDER
     Dosage: 50 MG, UNK

REACTIONS (3)
  - CONFUSIONAL STATE [None]
  - DIZZINESS [None]
  - HEADACHE [None]
